FAERS Safety Report 7788825-6 (Version None)
Quarter: 2011Q3

REPORT INFORMATION
  Report Type: 
  Country: None (occurrence: None)
  Receive Date: 20110930
  Receipt Date: 20110920
  Transmission Date: 20111222
  Serious: Yes (Hospitalization)
  Sender: FDA-Public Use
  Company Number: ES-SANOFI-AVENTIS-2011SA056632

PATIENT
  Age: 76 Year
  Sex: Male
  Weight: 83 kg

DRUGS (12)
  1. DIGOXIN [Concomitant]
  2. SIMVASTATIN [Concomitant]
  3. TORSEMIDE [Concomitant]
  4. ALLOPURINOL [Concomitant]
  5. BUDESONIDE [Concomitant]
  6. DRONEDARONE HCL [Suspect]
     Indication: ATRIAL FIBRILLATION
     Route: 048
     Dates: start: 20110223, end: 20110712
  7. SINTROM [Concomitant]
  8. BUDESONIDE/FORMOTEROL [Concomitant]
  9. EPLERENONE [Concomitant]
  10. SPIRIVA [Concomitant]
  11. VALSARTAN [Concomitant]
  12. FUROSEMIDE [Concomitant]

REACTIONS (1)
  - CARDIAC FAILURE [None]
